FAERS Safety Report 5670078-6 (Version None)
Quarter: 2008Q1

REPORT INFORMATION
  Report Type: 
  Country: None (occurrence: None)
  Receive Date: 20080317
  Receipt Date: 20080304
  Transmission Date: 20080703
  Serious: Yes (Other)
  Sender: FDA-Public Use
  Company Number: US-AMGEN-US268034

PATIENT
  Age: 77 Year
  Sex: Male

DRUGS (3)
  1. ARANESP [Suspect]
     Indication: DRUG USE FOR UNKNOWN INDICATION
     Dates: start: 20070101
  2. PREDNISONE TAB [Concomitant]
     Dates: start: 20070101
  3. PREDNISONE TAB [Concomitant]
     Dates: start: 20070101

REACTIONS (1)
  - APLASIA PURE RED CELL [None]
